FAERS Safety Report 13988899 (Version 1)
Quarter: 2017Q3

REPORT INFORMATION
  Report Type: Spontaneous
  Country: US (occurrence: US)
  Receive Date: 20170919
  Receipt Date: 20170919
  Transmission Date: 20171128
  Serious: Yes (Death)
  Sender: FDA-Public Use
  Company Number: None

PATIENT
  Sex: Female
  Weight: 115.65 kg

DRUGS (1)
  1. MEGACE [Suspect]
     Active Substance: MEGESTROL ACETATE

REACTIONS (1)
  - Death [None]
